FAERS Safety Report 8589228-7 (Version None)
Quarter: 2012Q3

REPORT INFORMATION
  Report Type: 
  Country: None (occurrence: None)
  Receive Date: 20120731
  Receipt Date: 20120711
  Transmission Date: 20120928
  Serious: Yes (Other)
  Sender: FDA-Public Use
  Company Number: JP-2012-15748

PATIENT
  Age: 17 Year
  Sex: Male

DRUGS (1)
  1. PLETAL [Suspect]
     Dosage: UNK, ORAL
     Route: 048

REACTIONS (2)
  - CONDITION AGGRAVATED [None]
  - ANEURYSM [None]
